FAERS Safety Report 9613595 (Version 1)
Quarter: 2013Q4

REPORT INFORMATION
  Report Type: Spontaneous
  Country: BR (occurrence: None)
  Receive Date: 20131008
  Receipt Date: 20131008
  Transmission Date: 20140711
  Serious: Yes (Hospitalization)
  Sender: FDA-Public Use
  Company Number: DSJ-2013-21411

PATIENT
  Age: 74 Year
  Sex: Male
  Weight: 67 kg

DRUGS (3)
  1. BENICAR (OLMESARTAN MEDOXOMIL) (TABLET) (OLMESARTAN MEDOXOMIL) [Suspect]
     Indication: HYPERTENSION
     Dosage: 40 MG (40 MG, 1 IN 1 D), PER ORAL
     Route: 048
     Dates: start: 201303, end: 201308
  2. ATENOLOL/CHLORTHALIDONE (CHLORTALIDONE, ATENOLOL) (CHLORTALIDEON, ATENOLOL) [Concomitant]
  3. MEDICINES [Concomitant]

REACTIONS (2)
  - Syncope [None]
  - Arrhythmia [None]
